FAERS Safety Report 9095067 (Version 2)
Quarter: 2013Q1

REPORT INFORMATION
  Report Type: Spontaneous
  Country: US (occurrence: None)
  Receive Date: 20130123
  Receipt Date: 20130207
  Transmission Date: 20140127
  Serious: Yes (Other)
  Sender: FDA-Public Use
  Company Number: KAD201301-000050

PATIENT
  Age: 53 Year
  Sex: Male
  Weight: 68.03 kg

DRUGS (7)
  1. RIBAPAK [Suspect]
     Indication: HEPATITIS C
     Dosage: (STRENGTH: 400/600; 600 MG IN THE MORNING AND 400 MG IN THE EVENING)
     Route: 048
     Dates: start: 20121222
  2. PEGASYS [Suspect]
     Indication: HEPATITIS C
     Dosage: INJECTIONS ONCE A WEEK ON FRIDAYS (STRENGTH: 180 MICROG)
     Route: 058
     Dates: start: 20121221
  3. PERPHENAZINE [Suspect]
     Indication: SLEEP DISORDER
     Route: 048
  4. ABILIFY [Suspect]
     Indication: BIPOLAR DISORDER
     Route: 048
  5. WELLBUTRIN [Concomitant]
  6. SYNTHROID [Concomitant]
  7. VISTARIL [Concomitant]

REACTIONS (7)
  - Influenza like illness [None]
  - Headache [None]
  - Nausea [None]
  - Vomiting [None]
  - Hypothyroidism [None]
  - Malaise [None]
  - Tongue paralysis [None]
